FAERS Safety Report 6524647-1 (Version None)
Quarter: 2010Q1

REPORT INFORMATION
  Report Type: 
  Country: None (occurrence: None)
  Receive Date: 20100104
  Receipt Date: 20091230
  Transmission Date: 20100710
  Serious: Yes (Death)
  Sender: FDA-Public Use
  Company Number: PHEH2009US18516

PATIENT
  Sex: Female

DRUGS (1)
  1. GLEEVEC [Suspect]
     Indication: COR PULMONALE CHRONIC
     Dosage: 200 MG, QD
     Route: 048

REACTIONS (1)
  - DEATH [None]
